FAERS Safety Report 10207112 (Version 1)
Quarter: 2014Q2

REPORT INFORMATION
  Report Type: Spontaneous
  Country: US (occurrence: US)
  Receive Date: 20140530
  Receipt Date: 20140530
  Transmission Date: 20141212
  Serious: No
  Sender: FDA-Public Use
  Company Number: US-ASTRAZENECA-2014SE35079

PATIENT
  Age: 69 Year
  Sex: Female

DRUGS (14)
  1. CRESTOR [Suspect]
     Route: 048
     Dates: start: 201404, end: 20140428
  2. VIIBRYD [Suspect]
     Indication: DEPRESSION
     Route: 048
     Dates: start: 201308
  3. VIIBRYD [Suspect]
     Indication: NEURALGIA
     Route: 048
     Dates: start: 201308
  4. VIIBRYD [Suspect]
     Indication: DEPRESSION
     Route: 048
     Dates: start: 2013, end: 2013
  5. VIIBRYD [Suspect]
     Indication: NEURALGIA
     Route: 048
     Dates: start: 2013, end: 2013
  6. VIIBRYD [Suspect]
     Indication: DEPRESSION
     Route: 048
     Dates: start: 2013
  7. VIIBRYD [Suspect]
     Indication: NEURALGIA
     Route: 048
     Dates: start: 2013
  8. ASPIRIN [Concomitant]
  9. FISH OIL [Concomitant]
  10. PROTONIX [Concomitant]
  11. CALCIUM [Concomitant]
  12. FLAXSEED OIL [Concomitant]
  13. COENZYME Q10 [Concomitant]
  14. PLAVIX [Concomitant]

REACTIONS (3)
  - Pain in extremity [Unknown]
  - Asthenia [Unknown]
  - Off label use [Unknown]
